FAERS Safety Report 6636895-0 (Version None)
Quarter: 2010Q1

REPORT INFORMATION
  Report Type: 
  Country: None (occurrence: None)
  Receive Date: 20100316
  Receipt Date: 20100309
  Transmission Date: 20100710
  Serious: Yes (Hospitalization)
  Sender: FDA-Public Use
  Company Number: PHHO2010US03842

PATIENT
  Sex: Male
  Weight: 101 kg

DRUGS (2)
  1. CERTICAN [Suspect]
     Indication: HEART TRANSPLANT
     Dosage: 125 MG, BID
     Route: 048
     Dates: start: 20080227
  2. NEORAL [Suspect]
     Indication: HEART TRANSPLANT
     Dosage: 150 MG, BID
     Route: 048
     Dates: start: 20080227

REACTIONS (4)
  - ASTHENIA [None]
  - BACK PAIN [None]
  - DYSURIA [None]
  - PAIN IN EXTREMITY [None]
